FAERS Safety Report 7789165-1 (Version None)
Quarter: 2011Q3

REPORT INFORMATION
  Report Type: 
  Country: None (occurrence: None)
  Receive Date: 20110930
  Receipt Date: 20110923
  Transmission Date: 20111222
  Serious: Yes (Other)
  Sender: FDA-Public Use
  Company Number: CA-PFIZER INC-2011214210

PATIENT
  Sex: Female

DRUGS (3)
  1. XALATAN [Suspect]
     Indication: GLAUCOMA
     Dosage: 1 GTT, 1X/DAY IN BOTH EYES
     Route: 047
  2. CUMADIN [Concomitant]
     Dosage: UNK
  3. LASIX [Concomitant]
     Dosage: UNK

REACTIONS (4)
  - CARDIOVASCULAR DISORDER [None]
  - RESPIRATORY DISORDER [None]
  - STENT MALFUNCTION [None]
  - FLUID RETENTION [None]
